FAERS Safety Report 7491757-4 (Version None)
Quarter: 2011Q2

REPORT INFORMATION
  Report Type: 
  Country: None (occurrence: None)
  Receive Date: 20110518
  Receipt Date: 20110518
  Transmission Date: 20111010
  Serious: Yes (Hospitalization, Other)
  Sender: FDA-Public Use
  Company Number: None

PATIENT
  Sex: Male

DRUGS (3)
  1. BIAXIN [Concomitant]
  2. DEXAMETHASONE [Concomitant]
  3. LENALIDOMIDE [Suspect]
     Indication: MULTIPLE MYELOMA
     Dosage: 25 MG QD X 14 DAYS PO
     Route: 048
     Dates: start: 20071001, end: 20080312

REACTIONS (1)
  - MALIGNANT NEOPLASM OF AMPULLA OF VATER [None]
